FAERS Safety Report 14637560 (Version 3)
Quarter: 2018Q2

REPORT INFORMATION
  Report Type: Spontaneous
  Country: CH (occurrence: CH)
  Receive Date: 20180314
  Receipt Date: 20180412
  Transmission Date: 20180711
  Serious: Yes (Hospitalization)
  Sender: FDA-Public Use
  Company Number: CH-INDIVIOR LIMITED-INDV-109521-2018

PATIENT
  Age: 67 Year
  Sex: Female
  Weight: 110 kg

DRUGS (24)
  1. TORSEMIDE. [Concomitant]
     Active Substance: TORSEMIDE
     Indication: PRODUCT USED FOR UNKNOWN INDICATION
     Dosage: 20 MG IN THE MORNING
     Route: 048
  2. METOLAZONE. [Suspect]
     Active Substance: METOLAZONE
     Indication: PRODUCT USED FOR UNKNOWN INDICATION
     Dosage: 5MG, BID
     Route: 048
     Dates: start: 20171221, end: 20180104
  3. EUTHYROX [Concomitant]
     Active Substance: LEVOTHYROXINE SODIUM
     Dosage: 0.1 MG, ONE TIME PER DAY
     Route: 048
  4. ANORO ELLIPTA [Concomitant]
     Active Substance: UMECLIDINIUM BROMIDE\VILANTEROL TRIFENATATE
     Indication: CHRONIC OBSTRUCTIVE PULMONARY DISEASE
     Dosage: UNK, MANAGED BY THE PATIENT
     Route: 055
     Dates: end: 201712
  5. CALCIMAGON D3 [Concomitant]
     Active Substance: CALCIUM\CHOLECALCIFEROL
     Indication: PRODUCT USED FOR UNKNOWN INDICATION
     Dosage: 1,000/800
     Route: 065
  6. FUROSEMIDE. [Suspect]
     Active Substance: FUROSEMIDE
     Indication: PRODUCT USED FOR UNKNOWN INDICATION
     Dosage: UNKNOWN
     Route: 048
     Dates: start: 201801, end: 20180131
  7. LISINOPRIL. [Concomitant]
     Active Substance: LISINOPRIL
     Indication: HYPERTENSION
     Dosage: 10 MG PER DAY
     Route: 048
     Dates: start: 201712, end: 201712
  8. DAFALGAN [Concomitant]
     Active Substance: ACETAMINOPHEN
     Indication: PRODUCT USED FOR UNKNOWN INDICATION
     Dosage: 1 GRAM THREE TIMES A DAY
     Route: 065
     Dates: start: 20171213
  9. TORSEMIDE. [Concomitant]
     Active Substance: TORSEMIDE
     Dosage: UNK, RESTARTED AT UNKNOWN DOSE AND FREQUENCY
     Route: 065
  10. ALDACTONE [Concomitant]
     Active Substance: SPIRONOLACTONE
     Indication: PRODUCT USED FOR UNKNOWN INDICATION
     Dosage: 25 MG IN THE MORNING
     Route: 065
     Dates: end: 201712
  11. CEFAZOLINE [Suspect]
     Active Substance: CEFAZOLIN SODIUM
     Indication: BACTERIAL SEPSIS
     Dosage: 2 GRAMS, TWO TIMES A DAY
     Route: 041
     Dates: start: 20180109, end: 20180114
  12. ASPIRIN                            /00002701/ [Concomitant]
     Active Substance: ASPIRIN
     Indication: MYOCARDIAL ISCHAEMIA
     Dosage: 100 MG, ONE TIME A DAY
     Route: 048
  13. DISTRANEURIN                       /00027501/ [Concomitant]
     Active Substance: CLOMETHIAZOLE
     Indication: INSOMNIA
     Dosage: 300 MG, 1 TIME A DAY
     Route: 065
  14. TEMGESIC 0.4MG TABLET [Suspect]
     Active Substance: BUPRENORPHINE HYDROCHLORIDE
     Indication: PAIN MANAGEMENT
     Dosage: UNK
     Route: 060
     Dates: start: 20171213, end: 201801
  15. EUTHYROX [Concomitant]
     Active Substance: LEVOTHYROXINE SODIUM
     Indication: HYPOTHYROIDISM
     Dosage: 0.075 MG ONE TIME PER DAY
     Route: 048
  16. PRAMIPEXOL [Concomitant]
     Active Substance: PRAMIPEXOLE
     Indication: RESTLESS LEGS SYNDROME
     Dosage: 1 MG IN THE EVENING (MANAGED BY PATIENT)
     Route: 048
     Dates: start: 20171229, end: 20180131
  17. FLOXAPEN                           /00239102/ [Suspect]
     Active Substance: FLUCLOXACILLIN
     Indication: BACTERIAL SEPSIS
     Dosage: 2GRAMS, SIX TIMES A DAY
     Route: 041
     Dates: start: 20171214, end: 20180109
  18. PANTOPRAZOLE [Suspect]
     Active Substance: PANTOPRAZOLE
     Indication: PROPHYLAXIS
     Dosage: 40 MG PER DAY
     Route: 048
     Dates: start: 20171229, end: 20180131
  19. CALCIPARINE [Suspect]
     Active Substance: HEPARIN CALCIUM
     Indication: PROPHYLAXIS
     Dosage: 5,000 IU, TWO TIMES PER DAY
     Route: 058
     Dates: start: 20171213, end: 201802
  20. TIZANIDINE. [Suspect]
     Active Substance: TIZANIDINE
     Indication: PRODUCT USED FOR UNKNOWN INDICATION
     Dosage: 1 DF, BID,
     Route: 048
     Dates: start: 20180107, end: 20180131
  21. VENTOLIN [Concomitant]
     Active Substance: ALBUTEROL SULFATE
     Indication: CHRONIC OBSTRUCTIVE PULMONARY DISEASE
     Dosage: UNK, MANAGED BY THE PATIENT
     Route: 055
  22. TEMGESIC 0.2MG TABLET [Suspect]
     Active Substance: BUPRENORPHINE HYDROCHLORIDE
     Indication: PAIN MANAGEMENT
     Dosage: UNK
     Route: 060
     Dates: start: 20171213, end: 201801
  23. NEXIUM [Suspect]
     Active Substance: ESOMEPRAZOLE MAGNESIUM
     Indication: PROPHYLAXIS
     Dosage: 40MG,QD
     Route: 048
     Dates: start: 20171213, end: 20171229
  24. ARANESP [Suspect]
     Active Substance: DARBEPOETIN ALFA
     Indication: PRODUCT USED FOR UNKNOWN INDICATION
     Dosage: 40 MCG, ONE TIME PER WEEK (THURSDAYS)
     Route: 058
     Dates: start: 20180104, end: 20180131

REACTIONS (1)
  - Drug reaction with eosinophilia and systemic symptoms [Recovering/Resolving]

NARRATIVE: CASE EVENT DATE: 20180104
